FAERS Safety Report 19815483 (Version 1)
Quarter: 2021Q3

REPORT INFORMATION
  Report Type: Spontaneous
  Country: CA (occurrence: CA)
  Receive Date: 20210910
  Receipt Date: 20210910
  Transmission Date: 20211014
  Serious: Yes (Hospitalization, Other)
  Sender: FDA-Public Use
  Company Number: CA-TEVA-2021-CA-1949366

PATIENT
  Age: 48 Year
  Sex: Male
  Weight: 72 kg

DRUGS (14)
  1. BISACODYL. [Concomitant]
     Active Substance: BISACODYL
     Route: 065
  2. CYCLOBENZAPRINE. [Concomitant]
     Active Substance: CYCLOBENZAPRINE
     Route: 065
  3. LAX?A?DAY [Concomitant]
     Active Substance: POLYETHYLENE GLYCOL 3350
     Route: 065
  4. DULOXETINE SANDOZ [Concomitant]
     Active Substance: DULOXETINE
     Route: 065
  5. CALCIUM [Concomitant]
     Active Substance: CALCIUM
     Route: 065
  6. CHOLECALCIFEROL [Concomitant]
     Active Substance: CHOLECALCIFEROL
     Route: 065
  7. FRAGMIN [Concomitant]
     Active Substance: DALTEPARIN SODIUM
     Route: 065
  8. SULFASALAZINE. [Concomitant]
     Active Substance: SULFASALAZINE
     Route: 065
  9. METHYLPREDNISOLONE NOS [Concomitant]
     Active Substance: METHYLPREDNISOLONE
     Route: 065
  10. CITRIZINE [Concomitant]
     Route: 065
  11. TEVA?GABAPENTIN 400MG [Suspect]
     Active Substance: GABAPENTIN
     Indication: NEURALGIA
     Dosage: 1200 MILLIGRAM DAILY;
     Route: 048
  12. PREDNISONE. [Suspect]
     Active Substance: PREDNISONE
     Indication: HYPERSENSITIVITY
     Dosage: 50 MILLIGRAM DAILY;
     Route: 048
  13. HYDROXYZINE [Concomitant]
     Active Substance: HYDROXYZINE HYDROCHLORIDE
     Route: 065
  14. PANTOPRAZOLE [Concomitant]
     Active Substance: PANTOPRAZOLE
     Route: 065

REACTIONS (7)
  - Musculoskeletal stiffness [Recovered/Resolved]
  - Face oedema [Recovered/Resolved]
  - Syncope [Recovered/Resolved]
  - Fatigue [Recovered/Resolved]
  - Erythema multiforme [Recovered/Resolved]
  - Pain [Recovered/Resolved]
  - Pruritus [Recovered/Resolved]
